FAERS Safety Report 10089977 (Version 1)
Quarter: 2014Q2

REPORT INFORMATION
  Report Type: Spontaneous
  Country: US (occurrence: None)
  Receive Date: 20140417
  Receipt Date: 20140417
  Transmission Date: 20141212
  Serious: No
  Sender: FDA-Public Use
  Company Number: CIO14005681

PATIENT
  Age: 29 Year
  Sex: Female
  Weight: 49.9 kg

DRUGS (4)
  1. NYQUIL COLD + FLU ALCOHOL 10% NIGHTTIME RELIEF, ORIGINAL FLAVOR (ETHANOL 10%, DEXTROMETHORPHANHYDROBROMIDE 30 MG, DOXYLAMINE SUCCINATE 12.5 MG, PARACETAMOL 650 MG) ORAL LIQUID, 30ML [Suspect]
     Indication: INFLUENZA
     Dosage: DOSAGE PER LABEL ONCE ONLY
     Route: 048
     Dates: start: 20110101, end: 20110101
  2. ADCIRCA (TADALAFIL) [Concomitant]
  3. SPIROLACTONE (SPIRONOLACTONE) [Concomitant]
  4. DIGOXIN (DIGOXIN) [Concomitant]

REACTIONS (2)
  - Blood pressure decreased [None]
  - Psychomotor hyperactivity [None]
